FAERS Safety Report 9441928 (Version 2)
Quarter: 2013Q4

REPORT INFORMATION
  Report Type: Spontaneous
  Country: DE (occurrence: None)
  Receive Date: 20130801
  Receipt Date: 20131125
  Transmission Date: 20140711
  Serious: Yes (Other)
  Sender: FDA-Public Use
  Company Number: JPI-P-034073

PATIENT
  Sex: Female

DRUGS (4)
  1. XYREM [Suspect]
     Indication: NARCOLEPSY
     Dosage: (2.25 GM, FREQUENCY NOT REPORTED), ORAL
     Route: 048
     Dates: start: 201306, end: 20130705
  2. VENLAFAXINE [Concomitant]
  3. MODAFINIL [Concomitant]
  4. ORAL CONTRACEPTIVE NOS [Concomitant]

REACTIONS (10)
  - Presyncope [None]
  - Hyperreflexia [None]
  - Restlessness [None]
  - Skin discomfort [None]
  - Psychotic disorder [None]
  - Parosmia [None]
  - Hyperreflexia [None]
  - Visual impairment [None]
  - Affect lability [None]
  - Photophobia [None]
